FAERS Safety Report 8884779 (Version 1)
Quarter: 2012Q4

REPORT INFORMATION
  Report Type: 
  Country: US (occurrence: US)
  Receive Date: 20121102
  Receipt Date: 20121102
  Transmission Date: 20130627
  Serious: Yes (Life-Threatening, Hospitalization)
  Sender: FDA-Public Use
  Company Number: US-BAYER-2012-114908

PATIENT
  Age: 32 Year
  Sex: Female

DRUGS (1)
  1. MAGNEVIST [Suspect]
     Dosage: 100 ml, ONCE
     Route: 042
     Dates: start: 20121026, end: 20121026

REACTIONS (2)
  - Anaphylactic shock [None]
  - Hypersensitivity [None]
